FAERS Safety Report 25217682 (Version 1)
Quarter: 2025Q2

REPORT INFORMATION
  Report Type: Spontaneous
  Country: US (occurrence: US)
  Receive Date: 20250420
  Receipt Date: 20250420
  Transmission Date: 20250717
  Serious: No
  Sender: TEVA
  Company Number: US-TEVA-VS-3320091

PATIENT
  Sex: Female

DRUGS (1)
  1. BUPRENORPHINE [Suspect]
     Active Substance: BUPRENORPHINE
     Indication: Product used for unknown indication
     Route: 060

REACTIONS (3)
  - Peripheral swelling [Unknown]
  - Product supply issue [Unknown]
  - Swelling face [Unknown]

NARRATIVE: CASE EVENT DATE: 20250101
